FAERS Safety Report 22605269 (Version 1)
Quarter: 2023Q2

REPORT INFORMATION
  Report Type: Spontaneous
  Country: IT (occurrence: IT)
  Receive Date: 20230615
  Receipt Date: 20230615
  Transmission Date: 20230721
  Serious: Yes (Hospitalization)
  Sender: FDA-Public Use
  Company Number: IT-ROCHE-1860931

PATIENT
  Age: 68 Year
  Sex: Female
  Weight: 65 kg

DRUGS (16)
  1. DOXORUBICIN HYDROCHLORIDE [Suspect]
     Active Substance: DOXORUBICIN HYDROCHLORIDE
     Indication: Diffuse large B-cell lymphoma
     Dosage: 50 MG/M2 (FREQ:21 D;MOST RECENT DOSE 04NOV2016)
     Route: 042
     Dates: start: 20160811
  2. VINCRISTINE SULFATE [Suspect]
     Active Substance: VINCRISTINE SULFATE
     Dosage: 1.4 MG/M2 (MOST RECENT DOSE ON 04NOV2016)
     Route: 042
     Dates: start: 20160812
  3. RITUXIMAB [Suspect]
     Active Substance: RITUXIMAB
     Indication: Diffuse large B-cell lymphoma
     Dosage: 375 MG/M2, FREQ:21 D;
     Route: 048
     Dates: start: 20161104
  4. RITUXIMAB [Suspect]
     Active Substance: RITUXIMAB
     Indication: Diffuse large B-cell lymphoma
     Dosage: 375 MG/M2, FREQ:21 D;
     Route: 042
     Dates: start: 20160810
  5. PREDNISONE [Suspect]
     Active Substance: PREDNISONE
     Indication: Diffuse large B-cell lymphoma
     Dosage: 100 MG (MOST RECENT DOSE ON 04NOV2016)
     Route: 048
     Dates: start: 20160811
  6. CYCLOPHOSPHAMIDE [Suspect]
     Active Substance: CYCLOPHOSPHAMIDE
     Indication: Diffuse large B-cell lymphoma
     Dosage: 750 MG/M2 (FREQ:21 D;MOST RECENT DOSE ON 04NOV2016 AND 14AUG2016)
     Route: 042
     Dates: start: 20160811
  7. PLACEBO [Suspect]
     Active Substance: UNSPECIFIED INGREDIENT
     Indication: Diffuse large B-cell lymphoma
     Dosage: FREQ:21 D;MOST RECENT DOSE ON 04NOV2016 AND 14AUG2016
     Route: 042
     Dates: start: 20160811
  8. PANTOPRAZOLE [Concomitant]
     Active Substance: PANTOPRAZOLE
     Indication: Gastritis prophylaxis
     Dosage: 20 MG, 1X/DAY
     Dates: start: 20160729
  9. HEPARIN [Concomitant]
     Active Substance: HEPARIN SODIUM
     Indication: Deep vein thrombosis
     Dosage: 16000 IU, 1X/DAY
     Dates: start: 20161022
  10. HEPARIN [Concomitant]
     Active Substance: HEPARIN SODIUM
     Dosage: 16000 IU, 1X/DAY
     Dates: start: 20161103
  11. HEPARIN [Concomitant]
     Active Substance: HEPARIN SODIUM
     Dosage: UNK
     Dates: start: 20161105
  12. HEPARIN [Concomitant]
     Active Substance: HEPARIN SODIUM
     Dosage: UNK
     Dates: start: 20161117
  13. DIFLUCAN [Concomitant]
     Active Substance: FLUCONAZOLE
     Indication: Mucosal inflammation
     Dosage: 200 MG, 1X/DAY
     Dates: start: 20161014
  14. PIOGLITAZONE [Concomitant]
     Active Substance: PIOGLITAZONE
     Indication: Diabetes mellitus
     Dosage: 15 MG, 1X/DAY
     Dates: start: 20160729
  15. LORMETAZEPAM [Concomitant]
     Active Substance: LORMETAZEPAM
     Indication: Insomnia
     Dosage: 10 DROP, 1X/DAY
     Dates: start: 20160729
  16. FILGRASTIM [Concomitant]
     Active Substance: FILGRASTIM
     Indication: Prophylaxis
     Dosage: 30 MIU
     Dates: start: 20161106

REACTIONS (4)
  - Hypotension [Recovered/Resolved]
  - Syncope [Recovered/Resolved]
  - Anaemia [Recovered/Resolved]
  - Platelet count decreased [Recovered/Resolved]

NARRATIVE: CASE EVENT DATE: 20161115
